FAERS Safety Report 20315127 (Version 1)
Quarter: 2022Q1

REPORT INFORMATION
  Report Type: Spontaneous
  Country: US (occurrence: None)
  Receive Date: 20220110
  Receipt Date: 20220110
  Transmission Date: 20220423
  Serious: Yes (Other)
  Sender: FDA-Public Use
  Company Number: US-ROCHE-2762845

PATIENT
  Sex: Female

DRUGS (1)
  1. RITUXAN [Suspect]
     Active Substance: RITUXIMAB
     Indication: Extranodal marginal zone B-cell lymphoma (MALT type)
     Route: 042
     Dates: start: 2010

REACTIONS (1)
  - Anaphylactic reaction [Recovered/Resolved]
